FAERS Safety Report 9223834 (Version 3)
Quarter: 2013Q2

REPORT INFORMATION
  Report Type: Spontaneous
  Country: US (occurrence: US)
  Receive Date: 20130410
  Receipt Date: 20130430
  Transmission Date: 20140414
  Serious: No
  Sender: FDA-Public Use
  Company Number: US-009507513-1304USA002786

PATIENT
  Sex: Male

DRUGS (3)
  1. ISENTRESS [Suspect]
     Indication: HIV INFECTION
     Dosage: 1 TABLET, TWICE DAILY
     Route: 048
     Dates: start: 20130326
  2. TRUVADA [Concomitant]
  3. ACYCLOVIR [Concomitant]

REACTIONS (1)
  - Dysgeusia [Not Recovered/Not Resolved]
